FAERS Safety Report 20360281 (Version 20)
Quarter: 2024Q4

REPORT INFORMATION
  Report Type: Spontaneous
  Country: CA (occurrence: CA)
  Receive Date: 20220121
  Receipt Date: 20241205
  Transmission Date: 20250115
  Serious: Yes (Other)
  Sender: ASTELLAS
  Company Number: CA-ASTELLAS-2022US001900

PATIENT
  Age: 43 Year
  Sex: Female

DRUGS (336)
  1. MYRBETRIQ [Suspect]
     Active Substance: MIRABEGRON
     Indication: Migraine
     Dosage: 1 DF, ONCE DAILY
     Route: 048
  2. MYRBETRIQ [Suspect]
     Active Substance: MIRABEGRON
     Dosage: 1 DF, EVERY OTHER DAY (1 EVERY 2 DAYS) (EXTENDED RELEASE)
     Route: 048
  3. MYRBETRIQ [Suspect]
     Active Substance: MIRABEGRON
     Dosage: 1 DF, ONCE DAILY
     Route: 065
  4. MYRBETRIQ [Suspect]
     Active Substance: MIRABEGRON
     Indication: Migraine
     Dosage: 1 DF, ONCE DAILY (1 EVERY 1 DAY)
     Route: 065
  5. MYRBETRIQ [Suspect]
     Active Substance: MIRABEGRON
     Dosage: 1 DF, ONCE DAILY
     Route: 048
  6. AIMOVIG [Suspect]
     Active Substance: ERENUMAB\ERENUMAB-AOOE
     Indication: Migraine
     Dosage: 1 DF, ONCE DAILY
     Route: 065
  7. AIMOVIG [Suspect]
     Active Substance: ERENUMAB\ERENUMAB-AOOE
     Dosage: UNK UNK, UNKNOWN FREQ.
     Route: 065
  8. ATOMOXETINE HYDROCHLORIDE [Suspect]
     Active Substance: ATOMOXETINE HYDROCHLORIDE
     Indication: Migraine
     Dosage: 1 DF, ONCE DAILY
     Route: 065
  9. ATOMOXETINE HYDROCHLORIDE [Suspect]
     Active Substance: ATOMOXETINE HYDROCHLORIDE
     Dosage: 1 DF, ONCE DAILY
     Route: 065
  10. ATOMOXETINE HYDROCHLORIDE [Suspect]
     Active Substance: ATOMOXETINE HYDROCHLORIDE
     Dosage: UNK UNK, UNKNOWN FREQ.
     Route: 065
  11. ATOMOXETINE HYDROCHLORIDE [Suspect]
     Active Substance: ATOMOXETINE HYDROCHLORIDE
     Dosage: 1 DF, EVERY OTHER DAY (ONE EVERY 2 DAYS)
     Route: 065
  12. ATOMOXETINE HYDROCHLORIDE [Suspect]
     Active Substance: ATOMOXETINE HYDROCHLORIDE
     Dosage: UNK UNK, UNKNOWN FREQ.
     Route: 065
  13. ATOMOXETINE HYDROCHLORIDE [Suspect]
     Active Substance: ATOMOXETINE HYDROCHLORIDE
     Dosage: UNK UNK, UNKNOWN FREQ.
     Route: 065
  14. ATOMOXETINE HYDROCHLORIDE [Suspect]
     Active Substance: ATOMOXETINE HYDROCHLORIDE
     Dosage: 1 DF, ONCE DAILY
     Route: 005
  15. ATOMOXETINE HYDROCHLORIDE [Suspect]
     Active Substance: ATOMOXETINE HYDROCHLORIDE
     Dosage: 1 DF, EVERY OTHER DAY (ONCE EVERY 2 DAYS)
     Route: 065
  16. ATOMOXETINE HYDROCHLORIDE [Suspect]
     Active Substance: ATOMOXETINE HYDROCHLORIDE
     Dosage: 1 DF, UNKNOWN FREQ.
     Route: 005
  17. ATOMOXETINE HYDROCHLORIDE [Suspect]
     Active Substance: ATOMOXETINE HYDROCHLORIDE
     Dosage: 1 DF, ONCE DAILY
     Route: 065
  18. ATOMOXETINE HYDROCHLORIDE [Suspect]
     Active Substance: ATOMOXETINE HYDROCHLORIDE
     Dosage: 1 DF, EVERY OTHER DAY (ONCE EVERY 2 DAYS)
     Route: 065
  19. ATOMOXETINE HYDROCHLORIDE [Suspect]
     Active Substance: ATOMOXETINE HYDROCHLORIDE
     Dosage: 1 DF, ONCE DAILY
     Route: 065
  20. ATOMOXETINE HYDROCHLORIDE [Suspect]
     Active Substance: ATOMOXETINE HYDROCHLORIDE
     Dosage: 1 DF, ONCE DAILY
     Route: 005
  21. ATOMOXETINE HYDROCHLORIDE [Suspect]
     Active Substance: ATOMOXETINE HYDROCHLORIDE
     Route: 065
  22. ATOMOXETINE HYDROCHLORIDE [Suspect]
     Active Substance: ATOMOXETINE HYDROCHLORIDE
     Route: 005
  23. ATOMOXETINE HYDROCHLORIDE [Suspect]
     Active Substance: ATOMOXETINE HYDROCHLORIDE
     Route: 065
  24. FLUTICASONE FUROATE [Suspect]
     Active Substance: FLUTICASONE FUROATE
     Indication: Product used for unknown indication
     Dosage: 1 DF, ONCE DAILY
     Route: 065
  25. FLUTICASONE FUROATE [Suspect]
     Active Substance: FLUTICASONE FUROATE
     Dosage: UNK UNK, UNKNOWN FREQ.
     Route: 065
  26. FLUTICASONE FUROATE [Suspect]
     Active Substance: FLUTICASONE FUROATE
     Dosage: SPRAY, METEREDDOSE
  27. AZELAIC ACID [Suspect]
     Active Substance: AZELAIC ACID
     Indication: Product used for unknown indication
     Dosage: UNK UNK, UNKNOWN FREQ.
     Route: 065
  28. AZELAIC ACID [Suspect]
     Active Substance: AZELAIC ACID
     Dosage: 2 DF, ONCE DAILY
     Route: 065
  29. AZELAIC ACID [Suspect]
     Active Substance: AZELAIC ACID
     Dosage: UNK UNK, UNKNOWN FREQ.
     Route: 005
  30. BETAMETHASONE VALERATE [Suspect]
     Active Substance: BETAMETHASONE VALERATE
     Indication: Product used for unknown indication
     Dosage: 1 DF, ONCE DAILY
     Route: 065
  31. BETAMETHASONE VALERATE [Suspect]
     Active Substance: BETAMETHASONE VALERATE
     Dosage: 1 DF, ONCE DAILY
     Route: 065
  32. BETAMETHASONE VALERATE [Suspect]
     Active Substance: BETAMETHASONE VALERATE
     Dosage: 1 DF, EVERY OTHER DAY (1 EVERY 2 DAYS)
     Route: 065
  33. BETAMETHASONE VALERATE [Suspect]
     Active Substance: BETAMETHASONE VALERATE
     Dosage: UNK UNK, UNKNOWN FREQ.
     Route: 065
  34. BETAMETHASONE VALERATE [Suspect]
     Active Substance: BETAMETHASONE VALERATE
     Dosage: 1 DF, ONCE DAILY
     Route: 065
  35. BOTULINUM TOXIN TYPE A [Suspect]
     Active Substance: BOTULINUM TOXIN TYPE A
     Indication: Migraine
     Dosage: UNK UNK, UNKNOWN FREQ. (POWDER FOR SOLUTION)
     Route: 065
  36. BOTULINUM TOXIN TYPE A [Suspect]
     Active Substance: BOTULINUM TOXIN TYPE A
     Dosage: POWDER AND SOLUTION FOR SOLUTION FOR INJECTION
     Route: 065
  37. BOTULINUM TOXIN TYPE A [Suspect]
     Active Substance: BOTULINUM TOXIN TYPE A
     Route: 065
  38. BOTOX [Suspect]
     Active Substance: ONABOTULINUMTOXINA
     Indication: Migraine
     Dosage: UNK UNK, ONCE DAILY?POWDER FOR SOLUTION
     Route: 030
  39. BOTOX [Suspect]
     Active Substance: ONABOTULINUMTOXINA
     Dosage: UNK UNK, UNKNOWN FREQ.
     Route: 030
  40. BUTRANS [Suspect]
     Active Substance: BUPRENORPHINE
     Indication: Product used for unknown indication
     Dosage: UNK UNK, UNKNOWN FREQ.
     Route: 065
  41. BUTRANS [Suspect]
     Active Substance: BUPRENORPHINE
     Dosage: PATCH
     Route: 065
  42. BUPRENORPHINE [Suspect]
     Active Substance: BUPRENORPHINE
     Indication: Product used for unknown indication
     Dosage: UNK UNK, UNKNOWN FREQ.
     Route: 065
  43. CALCIUM [Suspect]
     Active Substance: CALCIUM
     Indication: Product used for unknown indication
     Dosage: UNK UNK, UNKNOWN FREQ.
     Route: 065
  44. CALCIUM\CHOLECALCIFEROL\MAGNESIUM [Suspect]
     Active Substance: CALCIUM\CHOLECALCIFEROL\MAGNESIUM
     Indication: Product used for unknown indication
     Dosage: 1 DF, ONCE DAILY
     Route: 065
  45. CALCIUM\CHOLECALCIFEROL\MAGNESIUM [Suspect]
     Active Substance: CALCIUM\CHOLECALCIFEROL\MAGNESIUM
     Dosage: UNK UNK, UNKNOWN FREQ.
     Route: 065
  46. CALCIUM PANTOTHENATE [Suspect]
     Active Substance: CALCIUM PANTOTHENATE
     Indication: Product used for unknown indication
     Dosage: 1 DF, UNKNOWN FREQ.
     Route: 065
  47. CANDESARTAN [Suspect]
     Active Substance: CANDESARTAN
     Indication: Migraine
     Dosage: UNK UNK, UNKNOWN FREQ.
     Route: 048
  48. CANDESARTAN [Suspect]
     Active Substance: CANDESARTAN
     Dosage: UNK UNK, UNKNOWN FREQ.
     Route: 065
  49. CANDESARTAN CILEXETIL [Suspect]
     Active Substance: CANDESARTAN CILEXETIL
     Indication: Migraine
     Dosage: UNK UNK, UNKNOWN FREQ.
     Route: 048
  50. CALCIUM PANTOTHENATE [Suspect]
     Active Substance: CALCIUM PANTOTHENATE
     Indication: Product used for unknown indication
     Dosage: UNK UNK, UNKNOWN FREQ.
     Route: 065
  51. CALCIUM PANTOTHENATE [Suspect]
     Active Substance: CALCIUM PANTOTHENATE
     Dosage: 1 DF, UNKNOWN FREQ.
     Route: 065
  52. CETIRIZINE HYDROCHLORIDE AND PSEUDOEPHEDRINE HYDROCHLORIDE [Suspect]
     Active Substance: CETIRIZINE HYDROCHLORIDE\PSEUDOEPHEDRINE HYDROCHLORIDE
     Indication: Product used for unknown indication
     Dosage: 1 DF, ONCE DAILY
     Route: 065
  53. CETIRIZINE HYDROCHLORIDE AND PSEUDOEPHEDRINE HYDROCHLORIDE [Suspect]
     Active Substance: CETIRIZINE HYDROCHLORIDE\PSEUDOEPHEDRINE HYDROCHLORIDE
     Indication: Product used for unknown indication
     Dosage: UNK UNK, UNKNOWN FREQ.
     Route: 065
  54. CETIRIZINE HYDROCHLORIDE AND PSEUDOEPHEDRINE HYDROCHLORIDE [Suspect]
     Active Substance: CETIRIZINE HYDROCHLORIDE\PSEUDOEPHEDRINE HYDROCHLORIDE
     Dosage: 1 DF, ONCE DAILY (1 EVERY 1 DAYS)
     Route: 065
  55. CETIRIZINE HYDROCHLORIDE [Suspect]
     Active Substance: CETIRIZINE HYDROCHLORIDE
     Indication: Product used for unknown indication
     Dosage: 3 DF, ONCE DAILY
     Route: 065
  56. CETIRIZINE HYDROCHLORIDE [Suspect]
     Active Substance: CETIRIZINE HYDROCHLORIDE
     Dosage: UNK UNK, UNKNOWN FREQ.
     Route: 048
  57. CETIRIZINE HYDROCHLORIDE [Suspect]
     Active Substance: CETIRIZINE HYDROCHLORIDE
     Dosage: UNK UNK, UNKNOWN FREQ.
     Route: 048
  58. CETIRIZINE HYDROCHLORIDE [Suspect]
     Active Substance: CETIRIZINE HYDROCHLORIDE
     Dosage: 1 DF, ONCE DAILY
     Route: 065
  59. CETIRIZINE HYDROCHLORIDE [Suspect]
     Active Substance: CETIRIZINE HYDROCHLORIDE
     Dosage: UNK UNK, UNKNOWN FREQ.
     Route: 065
  60. CETIRIZINE HYDROCHLORIDE [Suspect]
     Active Substance: CETIRIZINE HYDROCHLORIDE
     Dosage: 3 DF, EVERY OTHER DAY (1 EVERY 2 DAYS)
     Route: 065
  61. CETIRIZINE HYDROCHLORIDE [Suspect]
     Active Substance: CETIRIZINE HYDROCHLORIDE
     Dosage: 3 DF, EVERY 12 HOURS
     Route: 065
  62. CETIRIZINE [Suspect]
     Active Substance: CETIRIZINE HYDROCHLORIDE
     Indication: Product used for unknown indication
     Dosage: 3 DF, EVERY OTHER DAY
     Route: 065
  63. CETIRIZINE [Suspect]
     Active Substance: CETIRIZINE HYDROCHLORIDE
     Dosage: UNK UNK, UNKNOWN FREQ.
     Route: 048
  64. CETIRIZINE [Suspect]
     Active Substance: CETIRIZINE HYDROCHLORIDE
     Indication: Product used for unknown indication
     Dosage: UNK UNK, UNKNOWN FREQ.
     Route: 048
  65. CETIRIZINE [Suspect]
     Active Substance: CETIRIZINE HYDROCHLORIDE
     Dosage: UNK UNK, UNKNOWN FREQ.
     Route: 065
  66. CETIRIZINE [Suspect]
     Active Substance: CETIRIZINE HYDROCHLORIDE
     Dosage: 3 DF, ONCE DAILY
     Route: 065
  67. CETIRIZINE [Suspect]
     Active Substance: CETIRIZINE HYDROCHLORIDE
     Dosage: 1 DF, ONCE DAILY
     Route: 065
  68. CETIRIZINE [Suspect]
     Active Substance: CETIRIZINE HYDROCHLORIDE
     Dosage: 1 DF, OTHER (1 EVERY 2 DAYS)
     Route: 065
  69. CETIRIZINE [Suspect]
     Active Substance: CETIRIZINE HYDROCHLORIDE
     Dosage: 3 DF, ONCE DAILY
     Route: 048
  70. CETIRIZINE HYDROCHLORIDE\PSEUDOEPHEDRINE HYDROCHLORIDE [Suspect]
     Active Substance: CETIRIZINE HYDROCHLORIDE\PSEUDOEPHEDRINE HYDROCHLORIDE
     Indication: Product used for unknown indication
     Dosage: UNK UNK, UNKNOWN FREQ.
     Route: 065
  71. TRICHOLINE CITRATE [Suspect]
     Active Substance: TRICHOLINE CITRATE
     Indication: Product used for unknown indication
     Dosage: UNK UNK, UNKNOWN FREQ.
     Route: 065
  72. CORTISONE [Suspect]
     Active Substance: CORTISONE
     Indication: Product used for unknown indication
     Dosage: 25 MG, ONCE DAILY
     Route: 065
  73. CORTISONE [Suspect]
     Active Substance: CORTISONE
     Dosage: 25 MG, EVERY 12 HOURS (1 EVERY 12 HOURS)
     Route: 065
  74. CORTISONE [Suspect]
     Active Substance: CORTISONE
     Dosage: 25 MG, EVERY OTHER DAY (1 EVERY 2 DAYS)
     Route: 065
  75. CORTISONE [Suspect]
     Active Substance: CORTISONE
     Dosage: 2 DF, EVERY OTHER DAY (1 EVERY 2 DAYS)
     Route: 065
  76. CORTISONE [Suspect]
     Active Substance: CORTISONE
     Route: 065
  77. CYCLOBENZAPRINE [Suspect]
     Active Substance: CYCLOBENZAPRINE
     Indication: Product used for unknown indication
     Dosage: 1 DF, ONCE DAILY (1 EVERY 1 DAYS)
     Route: 065
  78. CYCLOBENZAPRINE [Suspect]
     Active Substance: CYCLOBENZAPRINE
     Dosage: 1 DF, EVERY OTHER DAY (1 EVERY 2 DAYS)
     Route: 065
  79. CYCLOBENZAPRINE [Suspect]
     Active Substance: CYCLOBENZAPRINE
     Dosage: 1 DF, ONCE DAILY (1 EVERY 1 DAYS)
     Route: 065
  80. CYCLOBENZAPRINE [Suspect]
     Active Substance: CYCLOBENZAPRINE
     Dosage: 1 DF, ONCE DAILY (1 EVERY 1 DAYS)
     Route: 065
  81. CYCLOBENZAPRINE HYDROCHLORIDE [Suspect]
     Active Substance: CYCLOBENZAPRINE HYDROCHLORIDE
     Indication: Product used for unknown indication
     Dosage: 1 DF, ONCE DAILY
     Route: 065
  82. CYCLOBENZAPRINE HYDROCHLORIDE [Suspect]
     Active Substance: CYCLOBENZAPRINE HYDROCHLORIDE
     Dosage: 1 DF, EVERY OTHER DAY (ONCE EVERY 2 DAYS)
     Route: 065
  83. CYCLOBENZAPRINE HYDROCHLORIDE [Suspect]
     Active Substance: CYCLOBENZAPRINE HYDROCHLORIDE
     Indication: Product used for unknown indication
     Dosage: 1 DF, ONCE DAILY (1 EVERY 1 DAYS)
     Route: 065
  84. CYCLOBENZAPRINE HYDROCHLORIDE [Suspect]
     Active Substance: CYCLOBENZAPRINE HYDROCHLORIDE
     Dosage: 1 DF, EVERY OTHER DAY (1 EVERY 2 DAYS)
     Route: 065
  85. CYCLOBENZAPRINE HYDROCHLORIDE [Suspect]
     Active Substance: CYCLOBENZAPRINE HYDROCHLORIDE
     Dosage: 1 DF, EVERY OTHER DAY (1 EVERY 2 DAYS)
     Route: 065
  86. CYANOCOBALAMIN [Suspect]
     Active Substance: CYANOCOBALAMIN
     Indication: Product used for unknown indication
     Dosage: UNK UNK, UNKNOWN FREQ.
     Route: 065
  87. CYANOCOBALAMIN [Suspect]
     Active Substance: CYANOCOBALAMIN
     Dosage: 1 DF, UNKNOWN FREQ.
     Route: 048
  88. DESOXIMETASONE [Suspect]
     Active Substance: DESOXIMETASONE
     Indication: Product used for unknown indication
     Dosage: 50 MG, ONCE DAILY (25.0 MILLIGRAM 2 EVERY 1 DAYS)
     Route: 065
  89. DESOXIMETASONE [Suspect]
     Active Substance: DESOXIMETASONE
     Dosage: 2 DF, ONCE DAILY
     Route: 065
  90. DESOXIMETASONE [Suspect]
     Active Substance: DESOXIMETASONE
     Dosage: UNK UNK, EVERY 12 HOURS
     Route: 065
  91. DESOXIMETASONE [Suspect]
     Active Substance: DESOXIMETASONE
     Dosage: 25 MG, UNKNOWN FREQ.
     Route: 065
  92. DESOXIMETASONE [Suspect]
     Active Substance: DESOXIMETASONE
     Dosage: 50 MG, ONCE DAILY (25.0 MILLIGRAM 2 EVERY 1 DAYS)
     Route: 065
  93. DESOXIMETASONE [Suspect]
     Active Substance: DESOXIMETASONE
     Dosage: 3 MG, CYCLIC
     Route: 065
  94. DESOXIMETASONE [Suspect]
     Active Substance: DESOXIMETASONE
     Dosage: 2 DF, ONCE DAILY
     Route: 065
  95. DESOXIMETASONE [Suspect]
     Active Substance: DESOXIMETASONE
     Dosage: 3 MG, ONCE DAILY
     Route: 065
  96. DESOXIMETASONE [Suspect]
     Active Substance: DESOXIMETASONE
     Dosage: 25 MG, ONCE DAILY
     Route: 065
  97. DESOXIMETASONE [Suspect]
     Active Substance: DESOXIMETASONE
     Dosage: UNK UNK, UNKNOWN FREQ.
     Route: 065
  98. DESOXIMETASONE [Suspect]
     Active Substance: DESOXIMETASONE
     Dosage: 1 DF, TWICE DAILY (2 EVERY 1 DAYS)
     Route: 065
  99. DESOXIMETASONE [Suspect]
     Active Substance: DESOXIMETASONE
     Dosage: 25 MG, TWICE DAILY (2 EVERY 1 DAYS)
     Route: 065
  100. DESOXIMETASONE [Suspect]
     Active Substance: DESOXIMETASONE
     Dosage: 1 DF, UNKNOWN FREQ.
     Route: 065
  101. DESOXIMETASONE [Suspect]
     Active Substance: DESOXIMETASONE
     Dosage: 1 DF, UNKNOWN FREQ.
     Route: 065
  102. DESOXIMETASONE [Suspect]
     Active Substance: DESOXIMETASONE
     Dosage: 3 DF, ONCE DAILY
     Route: 065
  103. DESOXIMETASONE [Suspect]
     Active Substance: DESOXIMETASONE
     Dosage: UNK UNK, EVERY OTHER DAY
     Route: 065
  104. DESOXIMETASONE [Suspect]
     Active Substance: DESOXIMETASONE
     Dosage: 50 MG, ONCE DAILY (25 MGX 2 EVERY 1 DAYS)
     Route: 065
  105. DESOXIMETASONE [Suspect]
     Active Substance: DESOXIMETASONE
     Dosage: 25 MG, EVERY 12 HOURS
     Route: 065
  106. DOMPERIDONE [Suspect]
     Active Substance: DOMPERIDONE
     Indication: Product used for unknown indication
     Dosage: 1 DF, ONCE DAILY
     Route: 065
  107. DOMPERIDONE [Suspect]
     Active Substance: DOMPERIDONE
     Dosage: UNK UNK, CYCLIC
     Route: 065
  108. DOMPERIDONE [Suspect]
     Active Substance: DOMPERIDONE
     Dosage: 1 DF, EVERY 3 DAYS
     Route: 065
  109. DOMPERIDONE [Suspect]
     Active Substance: DOMPERIDONE
     Dosage: 1 DF, EVERY 8 HOURS
     Route: 065
  110. DOMPERIDONE MALEATE [Suspect]
     Active Substance: DOMPERIDONE MALEATE
     Indication: Product used for unknown indication
     Dosage: UNK UNK, EVERY 3 DAYS (EVERY 72 HOURS)
     Route: 065
  111. DOMPERIDONE MALEATE [Suspect]
     Active Substance: DOMPERIDONE MALEATE
     Dosage: 1 DF, ONCE DAILY
     Route: 065
  112. DOMPERIDONE MALEATE [Suspect]
     Active Substance: DOMPERIDONE MALEATE
     Dosage: 1 DF, UNKNOWN FREQ.
     Route: 065
  113. DOMPERIDONE MALEATE [Suspect]
     Active Substance: DOMPERIDONE MALEATE
     Dosage: UNK UNK, UNKNOWN FREQ.
     Route: 065
  114. DOMPERIDONE MALEATE [Suspect]
     Active Substance: DOMPERIDONE MALEATE
     Dosage: 3 DF, EVERY OTHER DAY (1 EVERY 2 DAYS)
     Route: 065
  115. DOMPERIDONE MALEATE [Suspect]
     Active Substance: DOMPERIDONE MALEATE
     Route: 065
  116. DOMPERIDONE MALEATE [Suspect]
     Active Substance: DOMPERIDONE MALEATE
     Route: 065
  117. DOMPERIDONE MALEATE [Suspect]
     Active Substance: DOMPERIDONE MALEATE
     Route: 065
  118. DOMPERIDONE MALEATE [Suspect]
     Active Substance: DOMPERIDONE MALEATE
     Route: 065
  119. DOMPERIDONE MALEATE [Suspect]
     Active Substance: DOMPERIDONE MALEATE
     Route: 065
  120. DOMPERIDONE\PANTOPRAZOLE SODIUM [Suspect]
     Active Substance: DOMPERIDONE\PANTOPRAZOLE SODIUM
     Indication: Product used for unknown indication
     Dosage: 1 DF, EVERY OTHER DAY
     Route: 065
  121. DOMPERIDONE\PANTOPRAZOLE SODIUM [Suspect]
     Active Substance: DOMPERIDONE\PANTOPRAZOLE SODIUM
     Dosage: 4 DF, ONCE DAILY
     Route: 065
  122. DOMPERIDONE\PANTOPRAZOLE SODIUM [Suspect]
     Active Substance: DOMPERIDONE\PANTOPRAZOLE SODIUM
     Dosage: 3 DF, UNKNOWN FREQ.
     Route: 065
  123. DOMPERIDONE\PANTOPRAZOLE SODIUM [Suspect]
     Active Substance: DOMPERIDONE\PANTOPRAZOLE SODIUM
     Dosage: 3 DF, UNKNOWN FREQ.
     Route: 065
  124. DOMPERIDONE\PANTOPRAZOLE SODIUM [Suspect]
     Active Substance: DOMPERIDONE\PANTOPRAZOLE SODIUM
     Indication: Product used for unknown indication
     Dosage: 1 DF, 4 TIMES DAILY (4 EVERY 1 DAYS)
     Route: 065
  125. DOMPERIDONE\PANTOPRAZOLE SODIUM [Suspect]
     Active Substance: DOMPERIDONE\PANTOPRAZOLE SODIUM
     Dosage: 3 DF, UNKNOWN FREQ.
     Route: 065
  126. DOMPERIDONE\PANTOPRAZOLE SODIUM [Suspect]
     Active Substance: DOMPERIDONE\PANTOPRAZOLE SODIUM
     Dosage: 1 DF, EVERY OTHER DAY (1 EVERY 2 DAYS)
     Route: 065
  127. DOMPERIDONE\PANTOPRAZOLE SODIUM [Suspect]
     Active Substance: DOMPERIDONE\PANTOPRAZOLE SODIUM
     Dosage: 3 DF, UNKNOWN FREQ.
     Route: 065
  128. DOMPERIDONE\PANTOPRAZOLE SODIUM [Suspect]
     Active Substance: DOMPERIDONE\PANTOPRAZOLE SODIUM
     Indication: Product used for unknown indication
     Dosage: 1 DF, EVERY 8 HOURS
     Route: 065
  129. DOMPERIDONE\PANTOPRAZOLE SODIUM [Suspect]
     Active Substance: DOMPERIDONE\PANTOPRAZOLE SODIUM
     Dosage: 3 DF, ONCE DAILY
     Route: 065
  130. DOMPERIDONE\PANTOPRAZOLE SODIUM [Suspect]
     Active Substance: DOMPERIDONE\PANTOPRAZOLE SODIUM
     Dosage: 3 DF, UNKNOWN FREQ.
     Route: 065
  131. DOMPERIDONE\PANTOPRAZOLE SODIUM [Suspect]
     Active Substance: DOMPERIDONE\PANTOPRAZOLE SODIUM
     Dosage: 1 DF, EVERY OTHER DAY
     Route: 065
  132. DOMPERIDONE\PANTOPRAZOLE SODIUM [Suspect]
     Active Substance: DOMPERIDONE\PANTOPRAZOLE SODIUM
     Dosage: 1 DF, UNKNOWN FREQ.
     Route: 065
  133. ERENUMAB-AOOE [Suspect]
     Active Substance: ERENUMAB-AOOE
     Indication: Migraine
     Dosage: UNK UNK, UNKNOWN FREQ.
     Route: 065
  134. ERENUMAB-AOOE [Suspect]
     Active Substance: ERENUMAB-AOOE
     Dosage: UNK UNK, UNKNOWN FREQ.
     Route: 065
  135. ERENUMAB [Suspect]
     Active Substance: ERENUMAB
     Indication: Migraine
     Dosage: UNK UNK, UNKNOWN FREQ.
     Route: 065
  136. ERENUMAB [Suspect]
     Active Substance: ERENUMAB
     Dosage: 1 DF, ONCE DAILY
     Route: 065
  137. ERENUMAB [Suspect]
     Active Substance: ERENUMAB
     Dosage: UNK UNK, UNKNOWN FREQ.
     Route: 065
  138. ERENUMAB [Suspect]
     Active Substance: ERENUMAB
     Dosage: UNK UNK, UNKNOWN FREQ.
     Route: 065
  139. FETZIMA [Suspect]
     Active Substance: LEVOMILNACIPRAN HYDROCHLORIDE
     Indication: Product used for unknown indication
     Dosage: 1 DF, ONCE DAILY (1 EVERY 1 DAYS)
     Route: 065
  140. FETZIMA [Suspect]
     Active Substance: LEVOMILNACIPRAN HYDROCHLORIDE
     Dosage: 1 DF, EVERY OTHER DAY (ONCE EVERY 2 DAYS)
     Route: 065
  141. FETZIMA [Suspect]
     Active Substance: LEVOMILNACIPRAN HYDROCHLORIDE
     Dosage: UNK UNK, UNKNOWN FREQ.
     Route: 065
  142. FETZIMA [Suspect]
     Active Substance: LEVOMILNACIPRAN HYDROCHLORIDE
     Dosage: 1 DF, ONCE DAILY
     Route: 065
  143. FINACEA [Suspect]
     Active Substance: AZELAIC ACID
     Indication: Product used for unknown indication
     Dosage: 1 DF, ONCE DAILY
     Route: 065
  144. FINACEA [Suspect]
     Active Substance: AZELAIC ACID
     Dosage: 1 DF, EVERY OTHER DAY (ONCE EVERY 2 DAYS)
     Route: 065
  145. FINACEA [Suspect]
     Active Substance: AZELAIC ACID
     Dosage: UNK UNK, UNKNOWN FREQ.
     Route: 065
  146. FINACEA [Suspect]
     Active Substance: AZELAIC ACID
     Dosage: 1 DF, ONCE DAILY
     Route: 065
  147. FINACEA [Suspect]
     Active Substance: AZELAIC ACID
     Dosage: 1 DF, ONCE DAILY
     Route: 048
  148. FLUTICASONE FUROATE [Suspect]
     Active Substance: FLUTICASONE FUROATE
     Indication: Product used for unknown indication
     Dosage: 1 DF, ONCE DAILY (1 EVERY 1 DAYS)
     Route: 065
  149. FLUTICASONE FUROATE [Suspect]
     Active Substance: FLUTICASONE FUROATE
     Dosage: 1 DF, ONCE DAILY (1 EVERY 1 DAYS)
     Route: 065
  150. HYDROCORTISONE [Suspect]
     Active Substance: HYDROCORTISONE
     Indication: Product used for unknown indication
     Dosage: 25 DF, ONCE DAILY
     Route: 065
  151. HYDROCORTISONE [Suspect]
     Active Substance: HYDROCORTISONE
     Dosage: UNK UNK, TWICE DAILY
     Route: 065
  152. HYDROCORTISONE ACETATE [Suspect]
     Active Substance: HYDROCORTISONE ACETATE
     Indication: Product used for unknown indication
     Dosage: UNK UNK, EVERY 12 HOURS
     Route: 065
  153. HYDROCORTISONE ACETATE [Suspect]
     Active Substance: HYDROCORTISONE ACETATE
     Dosage: 50 MG, ONCE DAILY (2 X 25 EVERY 1 DAYS)
     Route: 065
  154. HYDROCORTISONE ACETATE [Suspect]
     Active Substance: HYDROCORTISONE ACETATE
     Dosage: 25 MG, ONCE DAILY
     Route: 065
  155. HYDROMORPHONE [Suspect]
     Active Substance: HYDROMORPHONE
     Indication: Product used for unknown indication
     Dosage: 1 DF, EVERY OTHER DAY (ONCE EVERY 2 DAYS)
     Route: 065
  156. HYDROMORPHONE [Suspect]
     Active Substance: HYDROMORPHONE
     Dosage: 2 DF, EVERY 12 HOURS
     Route: 065
  157. HYDROMORPHONE [Suspect]
     Active Substance: HYDROMORPHONE
     Dosage: 1 DF, UNKNOWN FREQ.
     Route: 065
  158. HYDROMORPHONE [Suspect]
     Active Substance: HYDROMORPHONE
     Dosage: 1 DF, TWICE DAILY
     Route: 065
  159. HYDROMORPHONE [Suspect]
     Active Substance: HYDROMORPHONE
     Dosage: UNK UNK, UNKNOWN FREQ.
     Route: 065
  160. HYDROMORPHONE [Suspect]
     Active Substance: HYDROMORPHONE
     Dosage: 1 DF, ONCE DAILY
     Route: 065
  161. HYDROMORPHONE [Suspect]
     Active Substance: HYDROMORPHONE
     Dosage: 4 DF, ONCE DAILY (2X2 EVERY 1 DAYS)
     Route: 065
  162. HYDROMORPHONE HYDROCHLORIDE [Suspect]
     Active Substance: HYDROMORPHONE HYDROCHLORIDE
     Indication: Product used for unknown indication
     Dosage: 1 DF, TWICE DAILY
     Route: 065
  163. HYDROMORPHONE HYDROCHLORIDE [Suspect]
     Active Substance: HYDROMORPHONE HYDROCHLORIDE
     Dosage: 1 DF, UNKNOWN FREQ.
     Route: 065
  164. LAMICTAL [Suspect]
     Active Substance: LAMOTRIGINE
     Indication: Product used for unknown indication
     Dosage: 25 MG, UNKNOWN FREQ.
     Route: 048
  165. LAMICTAL [Suspect]
     Active Substance: LAMOTRIGINE
     Dosage: 50 MG, TWICE DAILY
     Route: 048
  166. LAMICTAL [Suspect]
     Active Substance: LAMOTRIGINE
     Dosage: 25 MG, EVERY OTHER DAY (ONCE EVERY 2 DAYS)
     Route: 048
  167. LAMICTAL [Suspect]
     Active Substance: LAMOTRIGINE
     Dosage: 50 MG, UNKNOWN FREQ.
     Route: 048
  168. LAMICTAL [Suspect]
     Active Substance: LAMOTRIGINE
     Dosage: 50 MG, EVERY 12 HOURS (1 EVERY 12 HOURS)
     Route: 048
  169. LAMICTAL [Suspect]
     Active Substance: LAMOTRIGINE
     Dosage: 1 DF, CYCLIC
     Route: 065
  170. LAMICTAL [Suspect]
     Active Substance: LAMOTRIGINE
     Dosage: 50 MG, UNKNOWN FREQ.
     Route: 048
  171. LAMICTAL [Suspect]
     Active Substance: LAMOTRIGINE
     Dosage: 50 MG, EVERY OTHER DAY
     Route: 048
  172. LAMICTAL [Suspect]
     Active Substance: LAMOTRIGINE
     Dosage: 50 MG, TWICE DAILY
     Route: 065
  173. LAMICTAL [Suspect]
     Active Substance: LAMOTRIGINE
     Dosage: 25 MG, TWICE DAILY
     Route: 048
  174. LAMICTAL [Suspect]
     Active Substance: LAMOTRIGINE
     Dosage: 25 MG, TWICE DAILY
     Route: 048
  175. LAMICTAL [Suspect]
     Active Substance: LAMOTRIGINE
     Dosage: 100 MG, ONCE DAILY (50 MG X 2 EVERY 1 DAYS)
     Route: 065
  176. LAMICTAL [Suspect]
     Active Substance: LAMOTRIGINE
     Dosage: 100 MG, ONCE DAILY (50 MG X 2 EVERY 1 DAYS)
     Route: 048
  177. LAMICTAL [Suspect]
     Active Substance: LAMOTRIGINE
     Dosage: 50 MG, ONCE DAILY (25 MG X 2 EVERY 1 DAYS)
     Route: 065
  178. LAMICTAL [Suspect]
     Active Substance: LAMOTRIGINE
     Dosage: 100 MG, ONCE DAILY (50 MG X 2 EVERY 1 DAYS)
     Route: 048
  179. LAMICTAL [Suspect]
     Active Substance: LAMOTRIGINE
     Dosage: 50 MG, EVERY 12 HOURS
     Route: 065
  180. LAMOTRIGINE [Suspect]
     Active Substance: LAMOTRIGINE
     Indication: Product used for unknown indication
     Dosage: 25 MG, EVERY 12 HOURS
     Route: 048
  181. LAMOTRIGINE [Suspect]
     Active Substance: LAMOTRIGINE
     Indication: Product used for unknown indication
     Dosage: 50 MG, EVERY 12 HOURS
     Route: 048
  182. LAMOTRIGINE [Suspect]
     Active Substance: LAMOTRIGINE
     Indication: Product used for unknown indication
     Dosage: 25 MG, TWICE DAILY
     Route: 048
  183. LAMOTRIGINE [Suspect]
     Active Substance: LAMOTRIGINE
     Dosage: 25 MG, EVERY 12 HOURS
     Route: 048
  184. LAMOTRIGINE [Suspect]
     Active Substance: LAMOTRIGINE
     Dosage: 50 MG, ONCE DAILY (2 EVERY 1 DAYS)
     Route: 048
  185. LAMOTRIGINE [Suspect]
     Active Substance: LAMOTRIGINE
     Route: 048
  186. MAGNESIUM CITRATE [Suspect]
     Active Substance: MAGNESIUM CITRATE
     Indication: Product used for unknown indication
     Dosage: UNK UNK, UNKNOWN FREQ.
     Route: 065
  187. MAGNESIUM CITRATE [Suspect]
     Active Substance: MAGNESIUM CITRATE
     Indication: Product used for unknown indication
     Dosage: UNK UNK, UNKNOWN FREQ.
     Route: 065
  188. MAGNESIUM [Suspect]
     Active Substance: MAGNESIUM
     Indication: Product used for unknown indication
     Dosage: UNK UNK, UNKNOWN FREQ.
     Route: 065
  189. MAGNESIUM [Suspect]
     Active Substance: MAGNESIUM
     Dosage: UNK UNK, UNKNOWN FREQ.
     Route: 065
  190. MAGNESIUM CARBONATE [Suspect]
     Active Substance: MAGNESIUM CARBONATE
     Indication: Product used for unknown indication
     Dosage: UNK UNK, UNKNOWN FREQ.
     Route: 065
  191. MILNACIPRAN HYDROCHLORIDE [Suspect]
     Active Substance: MILNACIPRAN HYDROCHLORIDE
     Indication: Product used for unknown indication
     Dosage: 1 DF, EVERY OTHER DAY (1 EVERY 2 DAYS)
     Route: 065
  192. MILNACIPRAN HYDROCHLORIDE [Suspect]
     Active Substance: MILNACIPRAN HYDROCHLORIDE
     Dosage: 1 DF, ONCE DAILY
     Route: 065
  193. NAPROXEN [Suspect]
     Active Substance: NAPROXEN
     Indication: Product used for unknown indication
     Dosage: 1 DF, EVERY OTHER DAY (1 EVERY 2 DAYS)
     Route: 065
  194. NAPROXEN [Suspect]
     Active Substance: NAPROXEN
     Dosage: 2 DF, TWICE DAILY (2 EVERY 1 DAYS)
     Route: 065
  195. NAPROXEN [Suspect]
     Active Substance: NAPROXEN
     Dosage: 1 DF, UNKNOWN FREQ.
     Route: 005
  196. NAPROXEN [Suspect]
     Active Substance: NAPROXEN
     Dosage: 1 DF, EVERY OTHER DAY
     Route: 065
  197. NAPROXEN [Suspect]
     Active Substance: NAPROXEN
     Dosage: 1 DF, TWICE DAILY (2 EVERY 1 DAYS)
     Route: 065
  198. NAPROXEN [Suspect]
     Active Substance: NAPROXEN
     Dosage: 1 DF, TWICE DAILY
     Route: 005
  199. NAPROXEN [Suspect]
     Active Substance: NAPROXEN
     Dosage: 1 DF, ONCE DAILY
     Route: 065
  200. NAPROXEN [Suspect]
     Active Substance: NAPROXEN
     Dosage: 2 DF, TWICE DAILY (2 EVERY 1 DAYS)
     Route: 005
  201. NAPROXEN [Suspect]
     Active Substance: NAPROXEN
     Dosage: 2 DF, EVERY 12 HOURS
     Route: 065
  202. NAPROXEN [Suspect]
     Active Substance: NAPROXEN
     Dosage: 1 DF, UNKNOWN FREQ.
     Route: 005
  203. NAPROXEN [Suspect]
     Active Substance: NAPROXEN
     Indication: Product used for unknown indication
     Dosage: 2 DF, EVERY 12 HOURS
     Route: 065
  204. NAPROXEN [Suspect]
     Active Substance: NAPROXEN
     Dosage: 1 DF, EVERY OTHER DAY
     Route: 065
  205. NAPROXEN [Suspect]
     Active Substance: NAPROXEN
     Dosage: 1 DF, TWICE DAILY
     Route: 065
  206. NAPROXEN [Suspect]
     Active Substance: NAPROXEN
     Dosage: 1 DF, UNKNOWN FREQ.
     Route: 005
  207. NAPROXEN [Suspect]
     Active Substance: NAPROXEN
     Dosage: 1 DF, UNKNOWN FREQ.
     Route: 065
  208. PANTOPRAZOLE [Suspect]
     Active Substance: PANTOPRAZOLE
     Indication: Product used for unknown indication
     Dosage: 3 DF, UNKNOWN FREQ.
     Route: 065
  209. PANTOPRAZOLE [Suspect]
     Active Substance: PANTOPRAZOLE
     Dosage: 2 DF, ONCE DAILY
     Route: 065
  210. PANTOPRAZOLE [Suspect]
     Active Substance: PANTOPRAZOLE
     Dosage: 2 DF, ONCE DAILY
     Route: 065
  211. PANTOPRAZOLE [Suspect]
     Active Substance: PANTOPRAZOLE
     Dosage: 1 DF, ONCE DAILY
     Route: 065
  212. PANTOPRAZOLE [Suspect]
     Active Substance: PANTOPRAZOLE
     Dosage: 3 DF, UNKNOWN FREQ.
     Route: 048
  213. PANTOPRAZOLE [Suspect]
     Active Substance: PANTOPRAZOLE
     Dosage: 1 DF, ONCE DAILY
     Route: 065
  214. PANTOPRAZOLE [Suspect]
     Active Substance: PANTOPRAZOLE
     Dosage: 1 DF, TWICE DAILY
     Route: 065
  215. PANTOPRAZOLE [Suspect]
     Active Substance: PANTOPRAZOLE
     Dosage: 1 DF, EVERY 12 HOURS
     Route: 065
  216. PANTOPRAZOLE [Suspect]
     Active Substance: PANTOPRAZOLE
     Dosage: 1 DF, THRICE DAILY
     Route: 065
  217. PANTOPRAZOLE [Suspect]
     Active Substance: PANTOPRAZOLE
     Dosage: UNK UNK, UNKNOWN FREQ.
     Route: 065
  218. PANTOPRAZOLE [Suspect]
     Active Substance: PANTOPRAZOLE
     Dosage: 1 DF, EVERY 8 HOURS
     Route: 065
  219. PANTOPRAZOLE [Suspect]
     Active Substance: PANTOPRAZOLE
     Indication: Product used for unknown indication
     Dosage: 2 DF, ONCE DAILY
     Route: 065
  220. PANTOPRAZOLE [Suspect]
     Active Substance: PANTOPRAZOLE
     Dosage: 2 DF, ONCE DAILY
     Route: 065
  221. PANTOPRAZOLE [Suspect]
     Active Substance: PANTOPRAZOLE
     Dosage: 3 DF, UNKNOWN FREQ.
     Route: 065
  222. PANTOPRAZOLE [Suspect]
     Active Substance: PANTOPRAZOLE
     Dosage: UNK UNK, UNKNOWN FREQ.
     Route: 065
  223. PANTOPRAZOLE SODIUM [Suspect]
     Active Substance: PANTOPRAZOLE SODIUM
     Indication: Product used for unknown indication
     Dosage: 2 DF, ONCE DAILY
     Route: 065
  224. PANTOPRAZOLE SODIUM [Suspect]
     Active Substance: PANTOPRAZOLE SODIUM
     Dosage: 1 DF, UNKNOWN FREQ.
     Route: 065
  225. PANTOPRAZOLE SODIUM [Suspect]
     Active Substance: PANTOPRAZOLE SODIUM
     Dosage: 1 DF, ONCE DAILY
     Route: 065
  226. PANTOPRAZOLE SODIUM [Suspect]
     Active Substance: PANTOPRAZOLE SODIUM
     Dosage: 1 DF, TWICE DAILY (2 EVERY 1 DAYS)
     Route: 065
  227. PANTOPRAZOLE SODIUM [Suspect]
     Active Substance: PANTOPRAZOLE SODIUM
     Dosage: 1 DF, EVERY OTHER DAY (EVERY 2 DAYS)
     Route: 065
  228. PANTOPRAZOLE SODIUM [Suspect]
     Active Substance: PANTOPRAZOLE SODIUM
     Dosage: 1 DF, TWICE DAILY (2 EVERY 1 DAYS)
     Route: 065
  229. PANTOPRAZOLE SODIUM [Suspect]
     Active Substance: PANTOPRAZOLE SODIUM
     Dosage: 3 DF, UNKNOWN FREQ.
     Route: 065
  230. PANTOPRAZOLE SODIUM [Suspect]
     Active Substance: PANTOPRAZOLE SODIUM
     Dosage: 1 DF, EVERY 12 HOURS
     Route: 065
  231. PANTOPRAZOLE SODIUM [Suspect]
     Active Substance: PANTOPRAZOLE SODIUM
     Indication: Product used for unknown indication
     Dosage: 1 DF, TWICE DAILY (2 EVERY 1 DAYS)
     Route: 048
  232. PANTOPRAZOLE SODIUM [Suspect]
     Active Substance: PANTOPRAZOLE SODIUM
     Dosage: 1 DF, TWICE DAILY (2 EVERY 1 DAYS)
     Route: 065
  233. PAROXETINE [Suspect]
     Active Substance: PAROXETINE
     Indication: Product used for unknown indication
     Dosage: UNK UNK, UNKNOWN FREQ.
     Route: 065
  234. PAROXETINE [Suspect]
     Active Substance: PAROXETINE
     Dosage: UNK UNK, UNKNOWN FREQ.
     Route: 065
  235. PHOSPHORUS [Suspect]
     Active Substance: PHOSPHORUS
     Indication: Product used for unknown indication
     Dosage: UNK UNK, UNKNOWN FREQ.
     Route: 065
  236. PHOSPHORUS [Suspect]
     Active Substance: PHOSPHORUS
     Indication: Product used for unknown indication
     Dosage: UNK UNK, UNKNOWN FREQ.
     Route: 065
  237. PREDNICARBATE [Suspect]
     Active Substance: PREDNICARBATE
     Indication: Product used for unknown indication
     Dosage: UNK UNK, UNKNOWN FREQ.
     Route: 065
  238. PREDNICARBATE [Suspect]
     Active Substance: PREDNICARBATE
     Indication: Product used for unknown indication
     Dosage: UNK UNK, UNKNOWN FREQ.
     Route: 065
  239. PSEUDOEPHEDRINE [Suspect]
     Active Substance: PSEUDOEPHEDRINE
     Indication: Product used for unknown indication
     Dosage: UNK UNK, UNKNOWN FREQ.
     Route: 065
  240. PSEUDOEPHEDRINE [Suspect]
     Active Substance: PSEUDOEPHEDRINE
     Indication: Product used for unknown indication
     Dosage: UNK UNK, UNKNOWN FREQ.
     Route: 065
  241. PSEUDOEPHEDRINE HYDROCHLORIDE [Suspect]
     Active Substance: PSEUDOEPHEDRINE HYDROCHLORIDE
     Indication: Product used for unknown indication
     Dosage: UNK UNK, UNKNOWN FREQ.
     Route: 065
  242. PSEUDOEPHEDRINE HYDROCHLORIDE [Suspect]
     Active Substance: PSEUDOEPHEDRINE HYDROCHLORIDE
     Dosage: UNK UNK, UNKNOWN FREQ.
     Route: 065
  243. PYRIDOXINE HYDROCHLORIDE [Suspect]
     Active Substance: PYRIDOXINE HYDROCHLORIDE
     Indication: Product used for unknown indication
     Dosage: UNK UNK, UNKNOWN FREQ.
     Route: 065
  244. PYRIDOXINE HYDROCHLORIDE [Suspect]
     Active Substance: PYRIDOXINE HYDROCHLORIDE
     Dosage: UNK UNK, UNKNOWN FREQ.
     Route: 065
  245. RIBOFLAVIN [Suspect]
     Active Substance: RIBOFLAVIN
     Indication: Product used for unknown indication
     Dosage: UNK UNK, UNKNOWN FREQ.
     Route: 065
  246. RANITIDINE [Suspect]
     Active Substance: RANITIDINE
     Indication: Product used for unknown indication
     Dosage: UNK UNK, UNKNOWN FREQ.
     Route: 065
  247. RANITIDINE HYDROCHLORIDE [Suspect]
     Active Substance: RANITIDINE HYDROCHLORIDE
     Indication: Product used for unknown indication
     Dosage: UNK UNK, UNKNOWN FREQ.
     Route: 065
  248. RANITIDINE HYDROCHLORIDE [Suspect]
     Active Substance: RANITIDINE HYDROCHLORIDE
     Dosage: UNK UNK, UNKNOWN FREQ.
     Route: 065
  249. CETIRIZINE HYDROCHLORIDE [Suspect]
     Active Substance: CETIRIZINE HYDROCHLORIDE
     Indication: Product used for unknown indication
     Dosage: UNK UNK, UNKNOWN FREQ.
     Route: 065
  250. CETIRIZINE HYDROCHLORIDE [Suspect]
     Active Substance: CETIRIZINE HYDROCHLORIDE
     Dosage: UNK UNK, UNKNOWN FREQ.
     Route: 065
  251. CETIRIZINE HYDROCHLORIDE\PSEUDOEPHEDRINE HYDROCHLORIDE [Suspect]
     Active Substance: CETIRIZINE HYDROCHLORIDE\PSEUDOEPHEDRINE HYDROCHLORIDE
     Indication: Product used for unknown indication
     Dosage: UNK UNK, UNKNOWN FREQ. (EXTENDED RELEASE)
     Route: 065
  252. CETIRIZINE HYDROCHLORIDE\PSEUDOEPHEDRINE HYDROCHLORIDE [Suspect]
     Active Substance: CETIRIZINE HYDROCHLORIDE\PSEUDOEPHEDRINE HYDROCHLORIDE
     Dosage: UNK UNK, UNKNOWN FREQ. (EXTENDED RELEASE)
     Route: 048
  253. CETIRIZINE HYDROCHLORIDE\PSEUDOEPHEDRINE HYDROCHLORIDE [Suspect]
     Active Substance: CETIRIZINE HYDROCHLORIDE\PSEUDOEPHEDRINE HYDROCHLORIDE
     Route: 065
  254. STRATTERA [Suspect]
     Active Substance: ATOMOXETINE HYDROCHLORIDE
     Indication: Migraine
     Dosage: 3 DF, UNKNOWN FREQ.
     Route: 065
  255. STRATTERA [Suspect]
     Active Substance: ATOMOXETINE HYDROCHLORIDE
     Dosage: UNK UNK, UNKNOWN FREQ.
     Route: 065
  256. STRATTERA [Suspect]
     Active Substance: ATOMOXETINE HYDROCHLORIDE
     Dosage: UNK UNK, UNKNOWN FREQ.
     Route: 065
  257. TOPAMAX [Suspect]
     Active Substance: TOPIRAMATE
     Indication: Product used for unknown indication
     Dosage: 25 MG, ONCE DAILY 3 MONTHS
     Route: 065
  258. TOPAMAX [Suspect]
     Active Substance: TOPIRAMATE
     Dosage: 25 MG, EVERY OTHER DAY (1 EVERY 2 DAYS)
     Route: 065
  259. TOPAMAX [Suspect]
     Active Substance: TOPIRAMATE
     Dosage: 25 MG, ONCE DAILY
     Route: 065
  260. TOPAMAX [Suspect]
     Active Substance: TOPIRAMATE
     Dosage: UNK UNK, UNKNOWN FREQ.
     Route: 065
  261. TOPAMAX [Suspect]
     Active Substance: TOPIRAMATE
     Dosage: UNK UNK, UNKNOWN FREQ.
     Route: 065
  262. TOPICORT [Suspect]
     Active Substance: DESOXIMETASONE
     Indication: Product used for unknown indication
     Dosage: 1 DF, EVERY 12 HOURS
     Route: 065
  263. TOPICORT [Suspect]
     Active Substance: DESOXIMETASONE
     Dosage: 25 MG, TWICE DAILY (1 DF)
     Route: 065
  264. TOPICORT [Suspect]
     Active Substance: DESOXIMETASONE
     Dosage: 25 MG, EVERY 12 HOURS
     Route: 065
  265. TOPICORT [Suspect]
     Active Substance: DESOXIMETASONE
     Dosage: 25 MG, UNKNOWN FREQ.
     Route: 065
  266. TOPICORT [Suspect]
     Active Substance: DESOXIMETASONE
     Dosage: 3 MG, CYCLIC
     Route: 065
  267. TOPICORT [Suspect]
     Active Substance: DESOXIMETASONE
     Route: 065
  268. TOPICORT [Suspect]
     Active Substance: DESOXIMETASONE
     Dosage: 25 MG, UNKNOWN FREQ.
     Route: 065
  269. TOPICORT [Suspect]
     Active Substance: DESOXIMETASONE
     Indication: Product used for unknown indication
     Dosage: 3 MG, ONCE DAILY
     Route: 065
  270. TOPICORT [Suspect]
     Active Substance: DESOXIMETASONE
     Dosage: 3 MG, OTHER (EVERY HOUR)
     Route: 065
  271. TOPIRAMATE [Suspect]
     Active Substance: TOPIRAMATE
     Indication: Migraine
     Dosage: 25 MG, ONCE DAILY
     Route: 065
  272. TOPIRAMATE [Suspect]
     Active Substance: TOPIRAMATE
     Dosage: 25 MG, EVERY OTHER DAY (1 EVERY 2 DAYS)
     Route: 065
  273. TOPIRAMATE [Suspect]
     Active Substance: TOPIRAMATE
     Dosage: 3 MG, ONCE DAILY (1 EVERY 1 DAYS)
     Route: 065
  274. TOPIRAMATE [Suspect]
     Active Substance: TOPIRAMATE
     Dosage: 25 MG, ONCE DAILY
     Route: 065
  275. TOPIRAMATE [Suspect]
     Active Substance: TOPIRAMATE
     Dosage: UNK UNK, UNKNOWN FREQ.
     Route: 065
  276. TOPIRAMATE [Suspect]
     Active Substance: TOPIRAMATE
     Dosage: 25 MG, ONCE DAILY
     Route: 065
  277. TOPIRAMATE [Suspect]
     Active Substance: TOPIRAMATE
     Dosage: 25 MG, EVERY 12 HOURS
     Route: 065
  278. TOPIRAMATE [Suspect]
     Active Substance: TOPIRAMATE
     Route: 065
  279. TOPIRAMATE [Suspect]
     Active Substance: TOPIRAMATE
     Route: 065
  280. TRAZODONE [Suspect]
     Active Substance: TRAZODONE HYDROCHLORIDE
     Indication: Product used for unknown indication
     Dosage: 1 DF, EVERY OTHER DAY (ONCE EVERY 2DAYS)
     Route: 065
  281. TRAZODONE [Suspect]
     Active Substance: TRAZODONE HYDROCHLORIDE
     Dosage: 1 DF, ONCE DAILY
     Route: 065
  282. TRAZODONE [Suspect]
     Active Substance: TRAZODONE HYDROCHLORIDE
     Dosage: 1 DF, ONCE DAILY (1 EVERY 1 DAYS)
     Route: 065
  283. TRAZODONE [Suspect]
     Active Substance: TRAZODONE HYDROCHLORIDE
     Dosage: 1 DF, EVERY OTHER DAY (ONCE EVERY 2DAYS)
     Route: 065
  284. TRAZODONE HYDROCHLORIDE [Suspect]
     Active Substance: TRAZODONE HYDROCHLORIDE
     Indication: Product used for unknown indication
     Dosage: 1 DF, ONCE DAILY
     Route: 065
  285. TRAZODONE HYDROCHLORIDE [Suspect]
     Active Substance: TRAZODONE HYDROCHLORIDE
     Dosage: 1 DF, EVERY OTHER DAY (1 EVERY 2 DAYS)
     Route: 065
  286. TRAZODONE HYDROCHLORIDE [Suspect]
     Active Substance: TRAZODONE HYDROCHLORIDE
     Dosage: 1 DF, ONCE DAILY
     Route: 065
  287. THIAMINE HYDROCHLORIDE [Suspect]
     Active Substance: THIAMINE HYDROCHLORIDE
     Indication: Product used for unknown indication
     Dosage: UNK UNK, UNKNOWN FREQ.
     Route: 065
  288. THIAMINE HYDROCHLORIDE [Suspect]
     Active Substance: THIAMINE HYDROCHLORIDE
     Dosage: UNK UNK, UNKNOWN FREQ.
     Route: 065
  289. TRETINOIN [Suspect]
     Active Substance: TRETINOIN
     Indication: Product used for unknown indication
     Dosage: 1 DF, EVERY OTHER DAY (1 EVERY 2 DAYS)
     Route: 065
  290. TRETINOIN [Suspect]
     Active Substance: TRETINOIN
     Dosage: UNK UNK, UNKNOWN FREQ.
     Route: 065
  291. VITAMIN D3 [Suspect]
     Active Substance: CHOLECALCIFEROL
     Indication: Product used for unknown indication
     Dosage: UNK UNK, UNKNOWN FREQ.
     Route: 065
  292. VITAMIN D3 [Suspect]
     Active Substance: CHOLECALCIFEROL
     Dosage: UNK UNK, UNKNOWN FREQ.
     Route: 065
  293. VITAMIN D3 [Suspect]
     Active Substance: CHOLECALCIFEROL
     Indication: Product used for unknown indication
     Dosage: UNK UNK, UNKNOWN FREQ.
     Route: 065
  294. VITAMIN D3 [Suspect]
     Active Substance: CHOLECALCIFEROL
     Dosage: UNK UNK, UNKNOWN FREQ.
     Route: 065
  295. VITAMIN D3 [Suspect]
     Active Substance: CHOLECALCIFEROL
     Dosage: UNK UNK, UNKNOWN FREQ.
     Route: 065
  296. VITAMIN D3 [Suspect]
     Active Substance: CHOLECALCIFEROL
     Route: 065
  297. VITAMIN D3 [Suspect]
     Active Substance: CHOLECALCIFEROL
     Route: 065
  298. VITAMIN C [Suspect]
     Active Substance: ASCORBIC ACID
     Indication: Product used for unknown indication
     Dosage: UNK UNK, UNKNOWN FREQ.
     Route: 065
  299. VITAMIN C [Suspect]
     Active Substance: ASCORBIC ACID
     Indication: Product used for unknown indication
     Dosage: UNK UNK, UNKNOWN FREQ.
     Route: 065
  300. VITAMIN D [Suspect]
     Active Substance: VITAMIN D NOS
     Indication: Product used for unknown indication
     Dosage: UNK UNK, UNKNOWN FREQ.
     Route: 065
  301. VITAMIN D [Suspect]
     Active Substance: VITAMIN D NOS
     Indication: Product used for unknown indication
     Dosage: UNK UNK, UNKNOWN FREQ.
     Route: 065
  302. TRIAMCINOLONE ACETONIDE [Suspect]
     Active Substance: TRIAMCINOLONE ACETONIDE
     Indication: Product used for unknown indication
     Dosage: 25 MG, UNKNOWN FREQ.
     Route: 065
  303. TRIAMCINOLONE ACETONIDE [Suspect]
     Active Substance: TRIAMCINOLONE ACETONIDE
     Dosage: 25 MG, UNKNOWN FREQ.
     Route: 014
  304. BETAMETHASONE [Suspect]
     Active Substance: BETAMETHASONE
     Indication: Product used for unknown indication
     Dosage: UNK UNK, UNKNOWN FREQ.
     Route: 065
  305. BETAMETHASONE [Suspect]
     Active Substance: BETAMETHASONE
     Dosage: 1 DF, EVERY OTHER DAY (1 EVERY 2 DAYS)
     Route: 065
  306. BETAMETHASONE [Suspect]
     Active Substance: BETAMETHASONE
     Dosage: 1 DF, ONCE DAILY
     Route: 065
  307. BETAMETHASONE [Suspect]
     Active Substance: BETAMETHASONE
     Route: 065
  308. BETAMETHASONE [Suspect]
     Active Substance: BETAMETHASONE
     Dosage: 1 DF, EVERY OTHER DAY (1 EVERY 2 DAYS)
     Route: 065
  309. BETAMETHASONE [Suspect]
     Active Substance: BETAMETHASONE
     Route: 065
  310. CALCIUM GLUCONATE [Suspect]
     Active Substance: CALCIUM GLUCONATE
     Indication: Product used for unknown indication
     Dosage: UNK UNK, UNKNOWN FREQ.
     Route: 065
  311. DEXPANTHENOL [Suspect]
     Active Substance: DEXPANTHENOL
     Indication: Product used for unknown indication
     Dosage: 1 DF, UNKNOWN FREQ.
     Route: 065
  312. DEXPANTHENOL [Suspect]
     Active Substance: DEXPANTHENOL
     Dosage: 1 DF, ONCE DAILY
     Route: 065
  313. DEXPANTHENOL [Suspect]
     Active Substance: DEXPANTHENOL
     Dosage: UNK UNK, CYCLIC
     Route: 065
  314. ERGOCALCIFEROL [Suspect]
     Active Substance: ERGOCALCIFEROL
     Indication: Product used for unknown indication
     Dosage: 1 DF, UNKNOWN FREQ.
     Route: 065
  315. ERGOCALCIFEROL [Suspect]
     Active Substance: ERGOCALCIFEROL
     Dosage: UNK UNK, UNKNOWN FREQ.
     Route: 065
  316. ERGOCALCIFEROL [Suspect]
     Active Substance: ERGOCALCIFEROL
     Dosage: UNK UNK, UNKNOWN FREQ.
     Route: 065
  317. ERGOCALCIFEROL [Suspect]
     Active Substance: ERGOCALCIFEROL
     Dosage: UNK UNK, UNKNOWN FREQ.
     Route: 065
  318. FOLIC ACID [Suspect]
     Active Substance: FOLIC ACID
     Indication: Product used for unknown indication
     Dosage: 1 DF, UNKNOWN FREQ.
     Route: 065
  319. PAROXETINE HYDROCHLORIDE [Suspect]
     Active Substance: PAROXETINE HYDROCHLORIDE
     Indication: Product used for unknown indication
     Dosage: UNK UNK, UNKNOWN FREQ.
     Route: 065
  320. PAROXETINE HYDROCHLORIDE [Suspect]
     Active Substance: PAROXETINE HYDROCHLORIDE
     Dosage: UNK UNK, UNKNOWN FREQ.
     Route: 065
  321. RIBOFLAVIN\THIAMINE HYDROCHLORIDE [Suspect]
     Active Substance: RIBOFLAVIN\THIAMINE HYDROCHLORIDE
     Indication: Product used for unknown indication
     Dosage: 1 DF, UNKNOWN FREQ.
     Route: 065
  322. VITAMIN A [Suspect]
     Active Substance: VITAMIN A
     Indication: Product used for unknown indication
     Dosage: 1 DF, UNKNOWN FREQ.
     Route: 065
  323. ACETAMINOPHEN [Suspect]
     Active Substance: ACETAMINOPHEN
     Indication: Product used for unknown indication
     Dosage: UNK UNK, UNKNOWN FREQ.
     Route: 065
  324. BUPRENORPHINE HYDROCHLORIDE [Suspect]
     Active Substance: BUPRENORPHINE HYDROCHLORIDE
     Indication: Product used for unknown indication
     Dosage: UNK UNK, UNKNOWN FREQ.
     Route: 065
  325. CALCIUM CARBONATE [Suspect]
     Active Substance: CALCIUM CARBONATE
     Indication: Product used for unknown indication
     Dosage: UNK UNK, UNKNOWN FREQ.
     Route: 065
  326. NICOTINAMIDE [Suspect]
     Active Substance: NIACINAMIDE
     Indication: Product used for unknown indication
     Route: 065
  327. PANTOPRAZOLE SODIUM ANHYDROUS [Suspect]
     Active Substance: PANTOPRAZOLE SODIUM ANHYDROUS
     Indication: Product used for unknown indication
     Route: 065
  328. PANTOPRAZOLE SODIUM ANHYDROUS [Suspect]
     Active Substance: PANTOPRAZOLE SODIUM ANHYDROUS
     Route: 065
  329. PANTOPRAZOLE SODIUM ANHYDROUS [Suspect]
     Active Substance: PANTOPRAZOLE SODIUM ANHYDROUS
     Route: 065
  330. PANTOPRAZOLE SODIUM ANHYDROUS [Suspect]
     Active Substance: PANTOPRAZOLE SODIUM ANHYDROUS
     Route: 065
  331. PANTOPRAZOLE SODIUM ANHYDROUS [Suspect]
     Active Substance: PANTOPRAZOLE SODIUM ANHYDROUS
     Route: 065
  332. PANTOPRAZOLE SODIUM ANHYDROUS [Suspect]
     Active Substance: PANTOPRAZOLE SODIUM ANHYDROUS
     Route: 065
  333. PANTOPRAZOLE SODIUM ANHYDROUS [Suspect]
     Active Substance: PANTOPRAZOLE SODIUM ANHYDROUS
     Route: 065
  334. PANTOPRAZOLE SODIUM ANHYDROUS [Suspect]
     Active Substance: PANTOPRAZOLE SODIUM ANHYDROUS
     Route: 065
  335. PANTOPRAZOLE SODIUM ANHYDROUS [Suspect]
     Active Substance: PANTOPRAZOLE SODIUM ANHYDROUS
     Route: 065
  336. PANTOPRAZOLE SODIUM ANHYDROUS [Suspect]
     Active Substance: PANTOPRAZOLE SODIUM ANHYDROUS
     Route: 048

REACTIONS (14)
  - Epilepsy [Unknown]
  - Abdominal pain upper [Unknown]
  - Blepharospasm [Unknown]
  - Gastrooesophageal reflux disease [Unknown]
  - Hypoaesthesia [Unknown]
  - Memory impairment [Unknown]
  - Migraine [Unknown]
  - Pain [Unknown]
  - Paraesthesia [Unknown]
  - Taste disorder [Unknown]
  - Vomiting [Unknown]
  - Drug intolerance [Unknown]
  - Drug ineffective for unapproved indication [Unknown]
  - Off label use [Unknown]
